FAERS Safety Report 9356177 (Version 6)
Quarter: 2014Q1

REPORT INFORMATION
  Report Type: Report from Study
  Country: JP (occurrence: JP)
  Receive Date: 20130619
  Receipt Date: 20140225
  Transmission Date: 20141002
  Serious: Yes (Hospitalization)
  Sender: FDA-Public Use
  Company Number: JP-GLAXOSMITHKLINE-B0862480A

PATIENT
  Age: 39 Year
  Sex: Female
  Weight: 53 kg

DRUGS (6)
  1. VOTRIENT 200MG [Suspect]
     Indication: LEIOMYOSARCOMA
     Dosage: 800MG PER DAY
     Route: 048
     Dates: start: 20130104, end: 20130119
  2. VOTRIENT 200MG [Suspect]
     Indication: LEIOMYOSARCOMA
     Dosage: 400MG PER DAY
     Route: 048
     Dates: start: 20130131, end: 20130730
  3. VOTRIENT 200MG [Suspect]
     Indication: LEIOMYOSARCOMA
     Dosage: 600MG PER DAY
     Route: 048
     Dates: start: 20130808, end: 20130918
  4. VOTRIENT 200MG [Suspect]
     Indication: LEIOMYOSARCOMA
     Dosage: 800MG PER DAY
     Route: 048
     Dates: start: 20131009, end: 20131126
  5. VOTRIENT 200MG [Suspect]
     Indication: LEIOMYOSARCOMA
     Dosage: 800MG PER DAY
     Route: 048
     Dates: start: 20131220, end: 20140107
  6. RANMARK [Concomitant]
     Indication: LEIOMYOSARCOMA
     Dosage: 120MG PER DAY
     Route: 058
     Dates: start: 20130104

REACTIONS (5)
  - Hypertensive encephalopathy [Recovered/Resolved]
  - Pneumothorax [Recovered/Resolved]
  - Neutrophil count decreased [Recovered/Resolved]
  - Hypertension [Recovered/Resolved]
  - Pneumothorax [Recovered/Resolved]
